FAERS Safety Report 24533595 (Version 1)
Quarter: 2024Q4

REPORT INFORMATION
  Report Type: Spontaneous
  Country: US (occurrence: None)
  Receive Date: 20241021
  Receipt Date: 20241021
  Transmission Date: 20250115
  Serious: Yes (Life-Threatening, Other)
  Sender: Public
  Company Number: None

PATIENT
  Sex: Female
  Weight: 62.1 kg

DRUGS (6)
  1. ELIQUIS [Suspect]
     Active Substance: APIXABAN
     Dosage: OTHER QUANTITY : 1 TABLET(S);?FREQUENCY : TWICE A DAY;?
  2. METOPROLOL SUCCINATE [Suspect]
     Active Substance: METOPROLOL SUCCINATE
  3. CLOPIDOGREL [Suspect]
     Active Substance: CLOPIDOGREL BISULFATE
  4. ROSUVASTATIN [Suspect]
     Active Substance: ROSUVASTATIN
  5. FUROSEMIDE [Suspect]
     Active Substance: FUROSEMIDE
  6. BUMETANIDE [Suspect]
     Active Substance: BUMETANIDE

REACTIONS (4)
  - Diarrhoea [None]
  - Dry skin [None]
  - Headache [None]
  - Faeces discoloured [None]
